FAERS Safety Report 10602012 (Version 1)
Quarter: 2014Q4

REPORT INFORMATION
  Report Type: Spontaneous
  Country: GB (occurrence: GB)
  Receive Date: 20141124
  Receipt Date: 20141124
  Transmission Date: 20150529
  Serious: Yes (Death, Hospitalization, Other)
  Sender: FDA-Public Use
  Company Number: GB-TEVA-522447ISR

PATIENT
  Age: 73 Year
  Sex: Male

DRUGS (9)
  1. OMEPRAZOLE. [Concomitant]
     Active Substance: OMEPRAZOLE
  2. BISOPROLOL [Concomitant]
     Active Substance: BISOPROLOL
  3. METRONIDAZOLE. [Concomitant]
     Active Substance: METRONIDAZOLE
     Dosage: 1500 MILLIGRAM DAILY;
     Route: 042
  4. SIMVASTATIN. [Suspect]
     Active Substance: SIMVASTATIN
     Route: 048
     Dates: end: 20130324
  5. MIRTAZAPINE. [Concomitant]
     Active Substance: MIRTAZAPINE
  6. CLEXANE [Concomitant]
     Active Substance: ENOXAPARIN SODIUM
     Indication: THROMBOSIS PROPHYLAXIS
  7. RAMIPRIL. [Suspect]
     Active Substance: RAMIPRIL
     Route: 048
     Dates: end: 20130324
  8. NICOTINE. [Concomitant]
     Active Substance: NICOTINE
  9. ASPIRIN. [Concomitant]
     Active Substance: ASPIRIN

REACTIONS (10)
  - Blood creatine phosphokinase increased [Not Recovered/Not Resolved]
  - Delirium [Unknown]
  - Loss of consciousness [Unknown]
  - C-reactive protein increased [Not Recovered/Not Resolved]
  - Oliguria [Unknown]
  - Tachycardia [Not Recovered/Not Resolved]
  - Acute kidney injury [Fatal]
  - Syncope [Not Recovered/Not Resolved]
  - Body temperature abnormal [Not Recovered/Not Resolved]
  - Diarrhoea [Not Recovered/Not Resolved]

NARRATIVE: CASE EVENT DATE: 20130323
